FAERS Safety Report 8826051 (Version 1)
Quarter: 2012Q4

REPORT INFORMATION
  Report Type: Report from Study
  Country: DE (occurrence: DE)
  Receive Date: 20121005
  Receipt Date: 20121005
  Transmission Date: 20130627
  Serious: Yes (Hospitalization)
  Sender: FDA-Public Use
  Company Number: DE-PFIZER INC-DE-WYE-G04766609

PATIENT
  Age: 77 Year
  Sex: Female
  Weight: 62 kg

DRUGS (17)
  1. TAZOBAC [Suspect]
     Indication: URINARY TRACT INFECTION
     Dosage: 1 DF, 3x/day
     Route: 042
     Dates: start: 20090519, end: 20090525
  2. CIPROBAY [Suspect]
     Indication: URINARY TRACT INFECTION
     Dosage: 250 mg, 2x/day
     Route: 048
     Dates: start: 20090515, end: 20090518
  3. CLONT [Suspect]
     Indication: PNEUMONIA ASPIRATION
     Dosage: unknown
     Route: 048
     Dates: start: 20090407, end: 20090424
  4. ROCEPHIN [Suspect]
     Indication: PNEUMONIA ASPIRATION
     Dosage: unknown
     Route: 042
     Dates: start: 20090407, end: 20090424
  5. VAGIMID [Suspect]
     Indication: URINARY TRACT INFECTION
     Dosage: 500 mg, 2x/day
     Route: 048
     Dates: start: 20090529
  6. PANTOPRAZOLE [Suspect]
     Indication: GASTROOESOPHAGEAL REFLUX PROPHYLAXIS
     Dosage: 20 mg, 2x/day
     Route: 048
  7. ACETYLSALICYLIC ACID [Concomitant]
     Dosage: UNK
     Route: 048
     Dates: end: 20090427
  8. MADOPAR [Concomitant]
     Route: 048
  9. FRESUBIN [Concomitant]
     Dosage: UNK
     Route: 065
     Dates: start: 200904
  10. ISCOVER [Concomitant]
     Dosage: UNK
     Route: 048
     Dates: start: 20090520
  11. DIGITOXIN [Concomitant]
     Dosage: UNK
     Route: 048
     Dates: start: 20090519
  12. TEVETEN [Concomitant]
     Dosage: UNK
     Route: 048
     Dates: start: 2006, end: 200905
  13. CLEXANE [Concomitant]
     Dosage: UNK
     Route: 058
     Dates: start: 200904, end: 20090519
  14. NOVALGIN [Concomitant]
     Dosage: UNK
     Route: 048
     Dates: start: 20090427
  15. METOCLOPRAMIDE [Concomitant]
     Dosage: UNK
     Route: 048
     Dates: start: 20090427, end: 200905
  16. BELOC ZOK [Concomitant]
     Dosage: UNK
     Route: 048
     Dates: end: 20090427
  17. NAFTIFINE [Concomitant]
     Dosage: UNK
     Route: 048
     Dates: start: 2006, end: 200905

REACTIONS (2)
  - Clostridium difficile colitis [Recovered/Resolved]
  - Hypokalaemia [Recovered/Resolved]
